FAERS Safety Report 18558901 (Version 1)
Quarter: 2020Q4

REPORT INFORMATION
  Report Type: Spontaneous
  Country: US (occurrence: US)
  Receive Date: 20201130
  Receipt Date: 20201130
  Transmission Date: 20210114
  Serious: No
  Sender: FDA-Public Use
  Company Number: US-CELGENEUS-USA-20201106193

PATIENT
  Sex: Male
  Weight: 102.6 kg

DRUGS (2)
  1. REVLIMID [Suspect]
     Active Substance: LENALIDOMIDE
     Indication: AMYLOIDOSIS
     Dosage: 25 MILLIGRAM
     Route: 048
     Dates: start: 20200615
  2. REVLIMID [Suspect]
     Active Substance: LENALIDOMIDE
     Indication: OFF LABEL USE
     Dosage: 10 MILLIGRAM
     Route: 048
     Dates: start: 202008

REACTIONS (6)
  - Fall [Unknown]
  - Limb discomfort [Unknown]
  - Fatigue [Unknown]
  - Somnolence [Unknown]
  - Skin wrinkling [Unknown]
  - Increased tendency to bruise [Unknown]

NARRATIVE: CASE EVENT DATE: 2020
